FAERS Safety Report 24300970 (Version 1)
Quarter: 2024Q3

REPORT INFORMATION
  Report Type: Spontaneous
  Country: US (occurrence: US)
  Receive Date: 20240910
  Receipt Date: 20240910
  Transmission Date: 20241017
  Serious: No
  Sender: RECKITT BENCKISER
  Company Number: US-PROD-AS2-212756134-RB-085418-2024

PATIENT
  Age: 73 Year
  Sex: Female
  Weight: 70.45 kg

DRUGS (3)
  1. MUCINEX MAXIMUM STRENGTH [Suspect]
     Active Substance: GUAIFENESIN
     Indication: Respiratory tract congestion
     Dosage: 1.000DF
     Route: 048
     Dates: start: 20240205, end: 20240209
  2. METFORMIN [Concomitant]
     Active Substance: METFORMIN HYDROCHLORIDE
     Indication: Product used for unknown indication
     Dosage: UNKNOWN
     Route: 065
  3. LOSARTAN [Concomitant]
     Active Substance: LOSARTAN\LOSARTAN POTASSIUM
     Indication: Product used for unknown indication
     Dosage: UNKNOWN
     Route: 065

REACTIONS (1)
  - Accidental overdose [Recovered/Resolved]

NARRATIVE: CASE EVENT DATE: 20240209
